FAERS Safety Report 24996196 (Version 2)
Quarter: 2025Q1

REPORT INFORMATION
  Report Type: Spontaneous
  Country: CA (occurrence: CA)
  Receive Date: 20250221
  Receipt Date: 20250226
  Transmission Date: 20250409
  Serious: No
  Sender: ASTELLAS
  Company Number: CA-PFIZER INC-PV202500013454

PATIENT
  Age: 63 Year
  Sex: Female
  Weight: 71.9 kg

DRUGS (1)
  1. PADCEV [Suspect]
     Active Substance: ENFORTUMAB VEDOTIN-EJFV
     Indication: Product used for unknown indication
     Route: 042
     Dates: start: 20250213

REACTIONS (5)
  - Hypertension [Unknown]
  - Fatigue [Unknown]
  - Dry mouth [Unknown]
  - Pain [Unknown]
  - Liver disorder [Unknown]

NARRATIVE: CASE EVENT DATE: 20250213
